FAERS Safety Report 4352048-3 (Version None)
Quarter: 2004Q2

REPORT INFORMATION
  Report Type: 
  Country: None (occurrence: None)
  Receive Date: 20040429
  Receipt Date: 20040212
  Transmission Date: 20050107
  Serious: No
  Sender: FDA-Public Use
  Company Number: 2004-113385-NL

PATIENT
  Age: 27 Year
  Sex: Female
  Weight: 75 kg

DRUGS (11)
  1. NUVARING [Suspect]
     Indication: CONTRACEPTION
     Dosage: DF DAILY VAGINAL
     Route: 067
     Dates: start: 20040205
  2. ROBINUL [Concomitant]
  3. PAXIL [Concomitant]
  4. ERYTHROMYCIN [Concomitant]
  5. SUDAFED S.A. [Concomitant]
  6. ZANTAC [Concomitant]
  7. OTC PRENATAL VITAMINS [Concomitant]
  8. GLUCOSAMINE [Concomitant]
  9. CHONDROITIN [Concomitant]
  10. VITAMIN C [Concomitant]
  11. VITAMIN E [Concomitant]

REACTIONS (1)
  - INCREASED APPETITE [None]
